FAERS Safety Report 9739083 (Version 1)
Quarter: 2013Q4

REPORT INFORMATION
  Report Type: Spontaneous
  Country: CN (occurrence: CN)
  Receive Date: 20131209
  Receipt Date: 20131209
  Transmission Date: 20140711
  Serious: No
  Sender: FDA-Public Use
  Company Number: CN-JNJFOC-20131115466

PATIENT
  Age: 54 Year
  Sex: Female

DRUGS (1)
  1. DUROGESIC D-TRANS [Suspect]
     Indication: CANCER PAIN
     Dosage: THE DOSAGE WAS INCREASED FROM 2 PATCHES TO 3 PATCHES PER TIME FOR 72 HOURS
     Route: 062
     Dates: start: 20131031

REACTIONS (2)
  - Incorrect dose administered [Unknown]
  - Inadequate analgesia [Unknown]
